FAERS Safety Report 6368847-2 (Version None)
Quarter: 2009Q3

REPORT INFORMATION
  Report Type: 
  Country: None (occurrence: None)
  Receive Date: 20090922
  Receipt Date: 20090921
  Transmission Date: 20100115
  Serious: Yes (Other)
  Sender: FDA-Public Use
  Company Number: IN-ROXANE LABORATORIES, INC.-2009-RO-00959RO

PATIENT
  Age: 12 Year
  Sex: Male

DRUGS (8)
  1. ALPRAZOLAM INTENSOL [ORAL SOLUTION (CONCENTRATE)] 1 MG/ML [Suspect]
     Indication: CHEST PAIN
  2. ALPRAZOLAM INTENSOL [ORAL SOLUTION (CONCENTRATE)] 1 MG/ML [Suspect]
     Indication: ANXIETY
  3. ESCITALOPRAM [Suspect]
     Indication: CHEST PAIN
  4. ESCITALOPRAM [Suspect]
     Indication: ANXIETY
  5. RABEPRAZOLE [Suspect]
     Indication: CHEST PAIN
  6. RABEPRAZOLE [Suspect]
     Indication: ANXIETY
  7. DIPHENHYDRAMINE HCL [Concomitant]
     Indication: DYSKINESIA
     Route: 048
  8. DIPHENHYDRAMINE HCL [Concomitant]
     Indication: EXTRAPYRAMIDAL DISORDER

REACTIONS (2)
  - DYSKINESIA [None]
  - EXTRAPYRAMIDAL DISORDER [None]
